FAERS Safety Report 6679720-4 (Version None)
Quarter: 2010Q2

REPORT INFORMATION
  Report Type: 
  Country: None (occurrence: None)
  Receive Date: 20100409
  Receipt Date: 20090717
  Transmission Date: 20101027
  Serious: No
  Sender: FDA-Public Use
  Company Number: 2009-00509

PATIENT
  Age: 85 Year
  Sex: Female
  Weight: 61.2356 kg

DRUGS (4)
  1. ZICAM COLD REMEDY GEL SWABS [Suspect]
     Indication: NASOPHARYNGITIS
     Dosage: SPORADIC - 2-3 WKS/COLD
     Dates: start: 20060101, end: 20090101
  2. ATENOLOL [Concomitant]
  3. POTASSIUM [Concomitant]
  4. MAGNESIUM [Concomitant]

REACTIONS (2)
  - AGEUSIA [None]
  - ANOSMIA [None]
